FAERS Safety Report 23604943 (Version 1)
Quarter: 2024Q1

REPORT INFORMATION
  Report Type: Spontaneous
  Country: ES (occurrence: ES)
  Receive Date: 20240307
  Receipt Date: 20240307
  Transmission Date: 20240409
  Serious: Yes (Hospitalization)
  Sender: FDA-Public Use
  Company Number: None

PATIENT
  Age: 78 Year
  Sex: Female

DRUGS (3)
  1. BRIVIACT [Suspect]
     Active Substance: BRIVARACETAM
     Indication: Focal dyscognitive seizures
     Dosage: 100 MILLIGRAM, ONE TIME DOSE
     Route: 042
     Dates: start: 20240210, end: 20240210
  2. BRIVIACT [Suspect]
     Active Substance: BRIVARACETAM
     Indication: Focal dyscognitive seizures
     Dosage: 50 MILLIGRAM, 2X/DAY (BID)
     Route: 048
     Dates: start: 20240211, end: 20240214
  3. MIDAZOLAM [Concomitant]
     Active Substance: MIDAZOLAM
     Indication: Arrhythmia
     Dosage: 1.5 MILLIGRAM
     Route: 042

REACTIONS (3)
  - Acute psychosis [Recovered/Resolved]
  - Agitation [Recovered/Resolved]
  - Hallucination, visual [Recovered/Resolved]

NARRATIVE: CASE EVENT DATE: 20240212
